FAERS Safety Report 12252047 (Version 1)
Quarter: 2016Q2

REPORT INFORMATION
  Report Type: Spontaneous
  Country: US (occurrence: None)
  Receive Date: 20160408
  Receipt Date: 20160408
  Transmission Date: 20160815
  Serious: Yes (Death)
  Sender: FDA-Public Use
  Company Number: None

PATIENT

DRUGS (1)
  1. OXYCODONE OXYTIN [Suspect]
     Active Substance: OXYCODONE
     Indication: DRUG ABUSE

REACTIONS (2)
  - Intentional overdose [None]
  - Drug dependence [None]
